FAERS Safety Report 21128473 (Version 1)
Quarter: 2022Q3

REPORT INFORMATION
  Report Type: Spontaneous
  Country: US (occurrence: None)
  Receive Date: 20220725
  Receipt Date: 20220725
  Transmission Date: 20221026
  Serious: Yes (Other)
  Sender: FDA-Public Use
  Company Number: US-ROCHE-3140803

PATIENT
  Sex: Female

DRUGS (1)
  1. OCREVUS [Suspect]
     Active Substance: OCRELIZUMAB
     Indication: Product used for unknown indication
     Route: 042
     Dates: start: 202107

REACTIONS (6)
  - Disease recurrence [Unknown]
  - Fall [Unknown]
  - Wrist fracture [Unknown]
  - Eye contusion [Unknown]
  - Therapeutic response shortened [Unknown]
  - Sensory disturbance [Unknown]
